FAERS Safety Report 8084603 (Version 2)
Quarter: 2013Q2

REPORT INFORMATION
  Report Type: Report from Study
  Country: JP (occurrence: JP)
  Receive Date: 20110810
  Receipt Date: 20130402
  Transmission Date: 20140414
  Serious: Yes (Death, Hospitalization, Other)
  Sender: FDA-Public Use
  Company Number: JP-BRISTOL-MYERS SQUIBB COMPANY-15822687

PATIENT
  Age: 79 Year
  Sex: Female
  Weight: 49 kg

DRUGS (4)
  1. SPRYCEL [Suspect]
     Indication: ACUTE LYMPHOCYTIC LEUKAEMIA
     Dosage: ALSO FROM 28MAY11 TO 01JUN11
     Route: 048
     Dates: start: 20110528, end: 20110601
  2. FRANDOL [Concomitant]
     Dosage: TABS/ROUTE TDER
     Route: 062
     Dates: start: 20100924, end: 20110621
  3. ATELEC [Concomitant]
     Route: 048
     Dates: start: 20100924, end: 20110615
  4. LANIRAPID [Concomitant]
     Route: 048
     Dates: start: 20100924, end: 20110615

REACTIONS (6)
  - Malignant neoplasm progression [Fatal]
  - Ventricular fibrillation [Recovered/Resolved]
  - White blood cell count decreased [Recovering/Resolving]
  - Platelet count decreased [Recovering/Resolving]
  - Neutrophil count decreased [Recovering/Resolving]
  - Anaemia [Recovering/Resolving]
